FAERS Safety Report 11661492 (Version 1)
Quarter: 2015Q4

REPORT INFORMATION
  Report Type: Spontaneous
  Country: US (occurrence: None)
  Receive Date: 20151026
  Receipt Date: 20151026
  Transmission Date: 20160304
  Serious: Yes (Other)
  Sender: FDA-Public Use
  Company Number: US-MDT-ADR-2015-02026

PATIENT
  Age: 56 Year
  Sex: Female

DRUGS (1)
  1. BACLOFEN INTRATHECAL - 2000 MCG/ML [Suspect]
     Active Substance: BACLOFEN

REACTIONS (2)
  - Headache [None]
  - No therapeutic response [None]
